FAERS Safety Report 6937782-0 (Version None)
Quarter: 2010Q3

REPORT INFORMATION
  Report Type: 
  Country: None (occurrence: None)
  Receive Date: 20100823
  Receipt Date: 20100813
  Transmission Date: 20110219
  Serious: Yes (Other)
  Sender: FDA-Public Use
  Company Number: IT-BRISTOL-MYERS SQUIBB COMPANY-15248867

PATIENT

DRUGS (1)
  1. METFORMIN HCL [Suspect]
     Route: 064

REACTIONS (1)
  - FOETAL MALFORMATION [None]
